FAERS Safety Report 6673312-9 (Version None)
Quarter: 2010Q2

REPORT INFORMATION
  Report Type: 
  Country: None (occurrence: None)
  Receive Date: 20100408
  Receipt Date: 20100402
  Transmission Date: 20101027
  Serious: Yes (Life-Threatening, Hospitalization, Other)
  Sender: FDA-Public Use
  Company Number: JP-ELI_LILLY_AND_COMPANY-JP200908001735

PATIENT
  Sex: Male
  Weight: 60.9 kg

DRUGS (4)
  1. ALIMTA [Suspect]
     Indication: LUNG ADENOCARCINOMA STAGE IV
     Dosage: 875 MG, OTHER
     Route: 042
     Dates: start: 20090730, end: 20090730
  2. FOLIC ACID [Concomitant]
     Route: 048
     Dates: start: 20090101
  3. VITAMIN B-12 [Concomitant]
     Route: 030
     Dates: start: 20090101
  4. DECADRON /00016002/ [Concomitant]
     Indication: PROPHYLAXIS
     Dosage: 8 MG, DAILY (1/D)
     Route: 042
     Dates: start: 20090730, end: 20090730

REACTIONS (6)
  - C-REACTIVE PROTEIN INCREASED [None]
  - CARDIAC FAILURE [None]
  - DISSEMINATED INTRAVASCULAR COAGULATION [None]
  - HEPATIC FUNCTION ABNORMAL [None]
  - NAUSEA [None]
  - PYREXIA [None]
